FAERS Safety Report 9231073 (Version 3)
Quarter: 2013Q4

REPORT INFORMATION
  Report Type: Spontaneous
  Country: CA (occurrence: CA)
  Receive Date: 20130415
  Receipt Date: 20131210
  Transmission Date: 20140711
  Serious: Yes (Hospitalization)
  Sender: FDA-Public Use
  Company Number: CA-ROCHE-1211897

PATIENT
  Age: 81 Year
  Sex: Male

DRUGS (8)
  1. XOLAIR [Suspect]
     Indication: ASTHMA
     Route: 058
     Dates: start: 20121113
  2. XOLAIR [Suspect]
     Route: 065
     Dates: start: 20130205, end: 20130308
  3. SPIRIVA [Concomitant]
  4. ADVAIR [Concomitant]
  5. SINGULAIR [Concomitant]
  6. DAXAS [Concomitant]
  7. VENTOLIN [Concomitant]
  8. CLARITIN [Concomitant]

REACTIONS (10)
  - Obstructive airways disorder [Unknown]
  - Hypogeusia [Unknown]
  - Back pain [Recovering/Resolving]
  - Wheezing [Unknown]
  - Hyposmia [Unknown]
  - Increased upper airway secretion [Recovered/Resolved]
  - Anosmia [Not Recovered/Not Resolved]
  - Drug ineffective [Unknown]
  - Ageusia [Unknown]
  - Dyspnoea [Unknown]
